FAERS Safety Report 9487220 (Version 4)
Quarter: 2013Q4

REPORT INFORMATION
  Report Type: Report from Study
  Country: JP (occurrence: JP)
  Receive Date: 20130829
  Receipt Date: 20131223
  Transmission Date: 20140711
  Serious: Yes (Hospitalization)
  Sender: FDA-Public Use
  Company Number: JP-B.I. PHARMACEUTICALS,INC./RIDGEFIELD-2013-BI-26035NB

PATIENT
  Age: 61 Year
  Sex: Male

DRUGS (4)
  1. MIRAPEX LA [Suspect]
     Indication: PARKINSON^S DISEASE
     Dosage: 3.75 MG
     Route: 048
     Dates: start: 20120824
  2. FP [Concomitant]
     Indication: PARKINSON^S DISEASE
     Dosage: 5 MG
     Route: 048
  3. YOKUKANSAN [Concomitant]
     Indication: PARKINSON^S DISEASE
     Dosage: 2.5 G
     Route: 048
  4. MENESIT/ LEVODOPA_ CARBIDOPA [Concomitant]
     Indication: PARKINSON^S DISEASE
     Dosage: 300 MG
     Route: 048

REACTIONS (5)
  - Melaena [Recovered/Resolved]
  - Diverticulitis [Recovered/Resolved]
  - Gastritis erosive [Recovered/Resolved]
  - Anaemia [Recovered/Resolved]
  - Sudden onset of sleep [Not Recovered/Not Resolved]
